FAERS Safety Report 5734361-8 (Version None)
Quarter: 2008Q2

REPORT INFORMATION
  Report Type: 
  Country: None (occurrence: None)
  Receive Date: 20080508
  Receipt Date: 20080508
  Transmission Date: 20081010
  Serious: Yes (Other)
  Sender: FDA-Public Use
  Company Number: None

PATIENT
  Age: 54 Year
  Sex: Male
  Weight: 77.1115 kg

DRUGS (1)
  1. CENTRUM MULTIVITAMINS AND MINERALS [Suspect]
     Dosage: 1 DAILY
     Dates: start: 20010101, end: 20080401

REACTIONS (3)
  - ASTHENIA [None]
  - ERECTILE DYSFUNCTION [None]
  - PAIN [None]
